FAERS Safety Report 5965740-1 (Version None)
Quarter: 2008Q4

REPORT INFORMATION
  Report Type: 
  Country: None (occurrence: None)
  Receive Date: 20081125
  Receipt Date: 20081118
  Transmission Date: 20090506
  Serious: Yes (Other)
  Sender: FDA-Public Use
  Company Number: B0540669A

PATIENT
  Age: 78 Year
  Sex: Male
  Weight: 50 kg

DRUGS (2)
  1. VALTREX [Suspect]
     Indication: HERPES ZOSTER
     Dosage: 1000MG TWICE PER DAY
     Route: 048
     Dates: start: 20081002, end: 20081003
  2. VOLTAREN [Concomitant]
     Indication: DRUG USE FOR UNKNOWN INDICATION
     Route: 054

REACTIONS (1)
  - RENAL FAILURE ACUTE [None]
